FAERS Safety Report 4724911-2 (Version None)
Quarter: 2005Q3

REPORT INFORMATION
  Report Type: 
  Country: None (occurrence: None)
  Receive Date: 20050726
  Receipt Date: 20050712
  Transmission Date: 20060218
  Serious: Yes (Other)
  Sender: FDA-Public Use
  Company Number: DE-JNJFOC-20050704561

PATIENT
  Age: 20 Year
  Sex: Male

DRUGS (1)
  1. DURAGESIC-100 [Suspect]
     Indication: INTENTIONAL MISUSE
     Route: 062

REACTIONS (3)
  - CEREBROVASCULAR ACCIDENT [None]
  - DRUG ABUSER [None]
  - INTENTIONAL MISUSE [None]
